FAERS Safety Report 7167964 (Version 7)
Quarter: 2013Q1

REPORT INFORMATION
  Report Type: Report from Study
  Country: CA (occurrence: CA)
  Receive Date: 20091105
  Receipt Date: 20130327
  Transmission Date: 20140127
  Serious: Yes (Death, Hospitalization)
  Sender: FDA-Public Use
  Company Number: CA-SANOFI-AVENTIS-200920219GDDC

PATIENT
  Sex: Female
  Weight: 73.8 kg

DRUGS (9)
  1. DOCETAXEL [Suspect]
     Indication: BREAST CANCER METASTATIC
     Route: 042
     Dates: start: 20090806, end: 20090806
  2. BLINDED THERAPY [Suspect]
     Indication: BREAST CANCER METASTATIC
     Route: 042
     Dates: start: 20090806, end: 20090806
  3. CLODRONATE DISODIUM [Concomitant]
     Indication: METASTASES TO BONE
     Route: 048
     Dates: start: 20080214
  4. SIMVASTATIN [Concomitant]
     Indication: HYPERCHOLESTEROLAEMIA
     Route: 048
     Dates: start: 20080101
  5. PREVACID [Concomitant]
     Indication: DYSPEPSIA
     Route: 048
     Dates: start: 20080916
  6. VITAMIN D [Concomitant]
     Indication: VITAMIN SUPPLEMENTATION
     Route: 048
     Dates: start: 20080101
  7. IBUPROFEN [Concomitant]
     Indication: PAIN IN EXTREMITY
     Dosage: DOSE AS USED: 200-400 MG
     Route: 048
     Dates: start: 20080724
  8. ZOPICLONE [Concomitant]
     Indication: INSOMNIA
     Dates: start: 20080701
  9. MULTIVITAMINS [Concomitant]
     Indication: VITAMIN SUPPLEMENTATION
     Route: 048
     Dates: start: 20080101

REACTIONS (4)
  - Renal failure acute [Fatal]
  - Colitis ischaemic [Not Recovered/Not Resolved]
  - Hypotension [Recovered/Resolved with Sequelae]
  - Febrile neutropenia [Recovered/Resolved]
